FAERS Safety Report 6259606-X (Version None)
Quarter: 2009Q3

REPORT INFORMATION
  Report Type: 
  Country: None (occurrence: None)
  Receive Date: 20090702
  Receipt Date: 20090616
  Transmission Date: 20100115
  Serious: Yes (Death)
  Sender: FDA-Public Use
  Company Number: A03200902711

PATIENT
  Age: 25 Year
  Sex: Female

DRUGS (9)
  1. FLUDARABINE PHOSPHATE [Suspect]
     Indication: APLASTIC ANAEMIA
  2. FLUDARABINE PHOSPHATE [Suspect]
     Indication: BONE MARROW CONDITIONING REGIMEN
  3. CYCLOPHOSPHAMIDE [Suspect]
     Indication: APLASTIC ANAEMIA
  4. CYCLOPHOSPHAMIDE [Suspect]
     Indication: BONE MARROW CONDITIONING REGIMEN
  5. TACROLIMUS [Concomitant]
  6. ATG (ANTILYMPHOCYTE IMMUNOGLOBULIN (HORSE)) [Concomitant]
  7. CYCLOSPORINE [Concomitant]
  8. GRANULOCYTE-COLONY STIMULATING FACTOR (G-CSF) [Concomitant]
  9. PREDNISOLONE [Concomitant]

REACTIONS (9)
  - ABDOMINAL PAIN LOWER [None]
  - ACUTE GRAFT VERSUS HOST DISEASE IN INTESTINE [None]
  - ADENOVIRAL HAEMORRHAGIC CYSTITIS [None]
  - DYSURIA [None]
  - ENGRAFTMENT SYNDROME [None]
  - HAEMATURIA [None]
  - HERPES ZOSTER [None]
  - MICTURITION URGENCY [None]
  - RASH [None]
